FAERS Safety Report 24028822 (Version 1)
Quarter: 2024Q2

REPORT INFORMATION
  Report Type: Other
  Country: IN (occurrence: IN)
  Receive Date: 20240628
  Receipt Date: 20240628
  Transmission Date: 20240715
  Serious: Yes (Other)
  Sender: FDA-Public Use
  Company Number: IN-Breckenridge Pharmaceutical, Inc.-2158621

PATIENT
  Age: 61 Year
  Sex: Male

DRUGS (1)
  1. IMATINIB [Suspect]
     Active Substance: IMATINIB
     Indication: Chronic myeloid leukaemia
     Route: 048

REACTIONS (1)
  - Lichenoid keratosis [Recovered/Resolved]
